FAERS Safety Report 11212456 (Version 1)
Quarter: 2015Q2

REPORT INFORMATION
  Report Type: Spontaneous
  Country: US (occurrence: None)
  Receive Date: 20150622
  Receipt Date: 20150622
  Transmission Date: 20150821
  Serious: Yes (Hospitalization)
  Sender: FDA-Public Use
  Company Number: None

PATIENT
  Age: 68 Year
  Sex: Male
  Weight: 101.9 kg

DRUGS (1)
  1. SULFAMETHOXAZOLE/TRIMETHOPRIM [Suspect]
     Active Substance: SULFAMETHOXAZOLE\TRIMETHOPRIM
     Indication: ARTHROPOD BITE
     Dosage: 1 TAB BID
     Dates: start: 20150516, end: 20150522

REACTIONS (4)
  - Rash [None]
  - Stomatitis [None]
  - Platelet count decreased [None]
  - Malaise [None]

NARRATIVE: CASE EVENT DATE: 20150522
